FAERS Safety Report 5825568-X (Version None)
Quarter: 2008Q3

REPORT INFORMATION
  Report Type: 
  Country: None (occurrence: None)
  Receive Date: 20080723
  Receipt Date: 20080708
  Transmission Date: 20090109
  Serious: Yes (Hospitalization)
  Sender: FDA-Public Use
  Company Number: 14965

PATIENT
  Age: 75 Year
  Sex: Male
  Weight: 92.9874 kg

DRUGS (8)
  1. MORPHINE SULFATE [Suspect]
     Indication: PAIN
     Dosage: 60 MG QID ORALLY
     Route: 048
     Dates: start: 20030101, end: 20070709
  2. NEURONTIN [Concomitant]
  3. NORVASC [Concomitant]
  4. WELLBUTRIN [Concomitant]
  5. PAXIL [Concomitant]
  6. PERCOCET [Concomitant]
  7. ASPIRIN [Concomitant]
  8. MULTIVITAMIN SUPPLEMENT [Concomitant]

REACTIONS (3)
  - FALL [None]
  - PHARMACEUTICAL PRODUCT COMPLAINT [None]
  - RESPIRATORY DISTRESS [None]
